FAERS Safety Report 9938683 (Version 2)
Quarter: 2014Q1

REPORT INFORMATION
  Report Type: Report from Study
  Country: ES (occurrence: ES)
  Receive Date: 20140303
  Receipt Date: 20140303
  Transmission Date: 20141002
  Serious: Yes (Hospitalization, Other)
  Sender: FDA-Public Use
  Company Number: ES-JNJFOC-20140107970

PATIENT
  Age: 87 Year
  Sex: Male
  Weight: 84 kg

DRUGS (7)
  1. RIVAROXABAN [Suspect]
     Indication: THROMBOSIS PROPHYLAXIS
     Route: 048
     Dates: start: 20131204, end: 20131220
  2. RIVAROXABAN [Suspect]
     Indication: DEEP VEIN THROMBOSIS
     Route: 048
     Dates: start: 20131204, end: 20131220
  3. ARTILOG [Concomitant]
     Route: 065
     Dates: start: 20131018, end: 20131204
  4. ACENOCUMAROL [Concomitant]
     Indication: DEEP VEIN THROMBOSIS
     Route: 065
     Dates: start: 2010, end: 20140213
  5. ACENOCUMAROL [Concomitant]
     Indication: DEEP VEIN THROMBOSIS
     Route: 065
     Dates: start: 20130102
  6. PENTOXIFYLLINE [Concomitant]
     Route: 065
     Dates: start: 20140109
  7. ENOXAPARIN [Concomitant]
     Indication: DEEP VEIN THROMBOSIS
     Route: 065
     Dates: start: 20131221, end: 20140109

REACTIONS (1)
  - Blue toe syndrome [Recovering/Resolving]
